FAERS Safety Report 18796345 (Version 1)
Quarter: 2021Q1

REPORT INFORMATION
  Report Type: Other
  Country: None (occurrence: US)
  Receive Date: 20210127
  Receipt Date: 20210127
  Transmission Date: 20210419
  Serious: Yes (Other)
  Sender: FDA-Public Use
  Company Number: US-TOPCO ASSOCIATES LLC-2105936

PATIENT
  Sex: Female

DRUGS (2)
  1. TOP CARE DIPHENHYDRAMINE HCL [Suspect]
     Active Substance: DIPHENHYDRAMINE HYDROCHLORIDE
     Indication: SLEEP DISORDER
     Route: 048
  2. IBUPROFEN. [Concomitant]
     Active Substance: IBUPROFEN

REACTIONS (3)
  - Palpitations [None]
  - Epistaxis [None]
  - Chest pain [None]
